FAERS Safety Report 22308965 (Version 1)
Quarter: 2023Q2

REPORT INFORMATION
  Report Type: Spontaneous
  Country: US (occurrence: None)
  Receive Date: 20230511
  Receipt Date: 20230511
  Transmission Date: 20230721
  Serious: No
  Sender: FDA-Public Use
  Company Number: US-ROCHE-3311546

PATIENT
  Age: 60 Year
  Sex: Female
  Weight: 70.370 kg

DRUGS (2)
  1. OCREVUS [Suspect]
     Active Substance: OCRELIZUMAB
     Indication: Relapsing-remitting multiple sclerosis
     Dosage: ONGOING: YES
     Route: 042
     Dates: start: 20221003
  2. TECFIDERA [Concomitant]
     Active Substance: DIMETHYL FUMARATE

REACTIONS (1)
  - Blood sodium decreased [Not Recovered/Not Resolved]

NARRATIVE: CASE EVENT DATE: 20230310
